FAERS Safety Report 23064865 (Version 3)
Quarter: 2023Q4

REPORT INFORMATION
  Report Type: Report from Study
  Country: CA (occurrence: CA)
  Receive Date: 20231013
  Receipt Date: 20231229
  Transmission Date: 20240110
  Serious: Yes (Other)
  Sender: FDA-Public Use
  Company Number: CA-SAMSUNG BIOEPIS-SB-2023-26924

PATIENT
  Age: 38 Year
  Sex: Female
  Weight: 93 kg

DRUGS (4)
  1. RENFLEXIS [Suspect]
     Active Substance: INFLIXIMAB-ABDA
     Indication: Crohn^s disease
     Dosage: INJECTION, POWDER FOR SOLUTION;
     Route: 042
     Dates: start: 20230816
  2. RENFLEXIS [Suspect]
     Active Substance: INFLIXIMAB-ABDA
     Dosage: UNKNOWN
     Route: 065
  3. RENFLEXIS [Suspect]
     Active Substance: INFLIXIMAB-ABDA
     Dosage: UNKNOWN
     Route: 065
  4. RENFLEXIS [Suspect]
     Active Substance: INFLIXIMAB-ABDA
     Dosage: UNKNOWN
     Route: 042

REACTIONS (13)
  - Crohn^s disease [Not Recovered/Not Resolved]
  - Infusion related reaction [Recovering/Resolving]
  - Pain [Not Recovered/Not Resolved]
  - Fungal skin infection [Unknown]
  - COVID-19 [Unknown]
  - Immunosuppression [Unknown]
  - Arthralgia [Not Recovered/Not Resolved]
  - Blood immunoglobulin G increased [Unknown]
  - Blood immunoglobulin A increased [Unknown]
  - Vitamin D decreased [Unknown]
  - Infection [Unknown]
  - Drug ineffective [Unknown]
  - Product use issue [Unknown]

NARRATIVE: CASE EVENT DATE: 20230925
